FAERS Safety Report 4469537-3 (Version None)
Quarter: 2004Q3

REPORT INFORMATION
  Report Type: 
  Country: None (occurrence: None)
  Receive Date: 20040920
  Receipt Date: 20040706
  Transmission Date: 20050211
  Serious: Yes (Other)
  Sender: FDA-Public Use
  Company Number: PHEH2004US02835

PATIENT
  Age: 57 Year
  Sex: Male

DRUGS (9)
  1. ZOMETA [Suspect]
     Dosage: 4 MG EVERY MONTH, INTRAVENOUS
     Route: 042
     Dates: start: 20011001, end: 20031217
  2. DECADRON [Concomitant]
  3. HYDROCORTISONE [Concomitant]
  4. CYTOXAN [Concomitant]
  5. PROLEUKIN [Concomitant]
  6. ZOLADEX [Concomitant]
  7. PEG-INTRON [Concomitant]
  8. HERCEPTIN [Concomitant]
  9. PRILOCAINE (PRILOCAINE) [Concomitant]

REACTIONS (5)
  - BONE OPERATION [None]
  - IMPAIRED HEALING [None]
  - OSTEOMYELITIS [None]
  - OSTEONECROSIS [None]
  - TOOTH EXTRACTION [None]
